FAERS Safety Report 26072034 (Version 1)
Quarter: 2025Q4

REPORT INFORMATION
  Report Type: Spontaneous
  Country: US (occurrence: None)
  Receive Date: 20251120
  Receipt Date: 20251120
  Transmission Date: 20260118
  Serious: Yes (Other)
  Sender: FDA-CTU
  Company Number: None

PATIENT
  Age: 48 Year
  Sex: Female
  Weight: 80.2 kg

DRUGS (4)
  1. HUMATE-P [Suspect]
     Active Substance: HUMAN COAGULATION FACTOR VIII/VON WILLEBRAND FACTOR COMPLEX
     Indication: Von Willebrand^s disease
     Dosage: OTHER FREQUENCY : ONCE;?
     Route: 040
  2. HUMATE-P [Suspect]
     Active Substance: HUMAN COAGULATION FACTOR VIII/VON WILLEBRAND FACTOR COMPLEX
     Indication: Von Willebrand^s disease
     Dosage: OTHER FREQUENCY : ONCE;?
     Route: 040
  3. Losartan 25 mg PO daily [Concomitant]
  4. Tirzepatide 7.5 mg SQ weekly [Concomitant]

REACTIONS (7)
  - Infusion related reaction [None]
  - Nausea [None]
  - Flushing [None]
  - Dyspnoea [None]
  - Back pain [None]
  - Arthralgia [None]
  - Dizziness [None]

NARRATIVE: CASE EVENT DATE: 20251118
